FAERS Safety Report 9920697 (Version 2)
Quarter: 2014Q1

REPORT INFORMATION
  Report Type: Spontaneous
  Country: US (occurrence: US)
  Receive Date: 20140224
  Receipt Date: 20140224
  Transmission Date: 20141002
  Serious: Yes (Disabling)
  Sender: FDA-Public Use
  Company Number: US-GE HEALTHCARE MEDICAL DIAGNOSTICS-OSCN-PR-0905S-0215

PATIENT
  Age: 45 Year
  Sex: Male

DRUGS (10)
  1. OMNISCAN [Suspect]
     Indication: PRODUCT USED FOR UNKNOWN INDICATION
     Route: 042
     Dates: start: 20010214, end: 20010214
  2. OMNISCAN [Suspect]
     Indication: SPINAL CORD COMPRESSION
     Route: 042
     Dates: start: 20060930, end: 20060930
  3. MAGNEVIST [Suspect]
     Indication: MENTAL STATUS CHANGES
     Dates: start: 20060331, end: 20060331
  4. MAGNEVIST [Suspect]
     Indication: PYREXIA
     Dates: start: 20060614, end: 20060614
  5. MAGNEVIST [Suspect]
     Indication: PYREXIA
     Dates: start: 20060616, end: 20060616
  6. MAGNEVIST [Suspect]
     Indication: PNEUMONIA
     Dates: start: 20060923, end: 20060923
  7. MAGNEVIST [Suspect]
     Indication: PNEUMONIA
     Dates: start: 20060929, end: 20060929
  8. MAGNEVIST [Suspect]
     Indication: PARAESTHESIA
     Dates: start: 20070423, end: 20070423
  9. PROHANCE [Suspect]
     Indication: PRODUCT USED FOR UNKNOWN INDICATION
     Dates: start: 19981126, end: 19981126
  10. PROHANCE [Suspect]
     Indication: PRODUCT USED FOR UNKNOWN INDICATION
     Dates: start: 20070402, end: 20070402

REACTIONS (1)
  - Nephrogenic systemic fibrosis [Not Recovered/Not Resolved]
